FAERS Safety Report 11195739 (Version 2)
Quarter: 2015Q3

REPORT INFORMATION
  Report Type: Report from Study
  Country: US (occurrence: US)
  Receive Date: 20150617
  Receipt Date: 20150703
  Transmission Date: 20151125
  Serious: Yes (Other)
  Sender: FDA-Public Use
  Company Number: US-BIOGENIDEC-2015BI080072

PATIENT
  Age: 60 Year
  Sex: Male

DRUGS (1)
  1. TECFIDERA [Suspect]
     Active Substance: DIMETHYL FUMARATE
     Indication: MULTIPLE SCLEROSIS
     Route: 048
     Dates: start: 20130923, end: 201412

REACTIONS (7)
  - Gastrointestinal disorder [Unknown]
  - Prescribed underdose [Recovered/Resolved]
  - Cerebrovascular accident [Recovered/Resolved]
  - Carotid artery stenosis [Recovered/Resolved]
  - Carotid artery occlusion [Recovered/Resolved]
  - Atrial septal defect [Recovered/Resolved]
  - Multiple sclerosis relapse [Not Recovered/Not Resolved]

NARRATIVE: CASE EVENT DATE: 201309
